FAERS Safety Report 9726089 (Version 2)
Quarter: 2014Q2

REPORT INFORMATION
  Report Type: Spontaneous
  Country: DE (occurrence: DE)
  Receive Date: 20131203
  Receipt Date: 20140609
  Transmission Date: 20141212
  Serious: Yes (Other)
  Sender: FDA-Public Use
  Company Number: DE-JNJFOC-20131200452

PATIENT
  Sex: Male
  Weight: 84 kg

DRUGS (6)
  1. XARELTO [Suspect]
     Indication: ATRIAL FIBRILLATION
     Route: 048
  2. XARELTO [Suspect]
     Indication: ATRIAL FIBRILLATION
     Route: 048
     Dates: start: 20120723
  3. XARELTO [Suspect]
     Indication: CEREBROVASCULAR ACCIDENT PROPHYLAXIS
     Route: 048
  4. XARELTO [Suspect]
     Indication: CEREBROVASCULAR ACCIDENT PROPHYLAXIS
     Route: 048
     Dates: start: 20120723
  5. NEBIVOLOL [Concomitant]
     Indication: HYPERTENSION
     Route: 065
     Dates: start: 20130723
  6. FLECAINIDE [Concomitant]
     Indication: ATRIAL FIBRILLATION
     Route: 065

REACTIONS (5)
  - Haemorrhoidal haemorrhage [Unknown]
  - Diplopia [Unknown]
  - Headache [Unknown]
  - Dizziness [Unknown]
  - Gingival bleeding [Recovered/Resolved]
